FAERS Safety Report 14324044 (Version 2)
Quarter: 2018Q1

REPORT INFORMATION
  Report Type: Spontaneous
  Country: IT (occurrence: IT)
  Receive Date: 20171226
  Receipt Date: 20180206
  Transmission Date: 20180509
  Serious: Yes (Hospitalization)
  Sender: FDA-Public Use
  Company Number: PHHY2017IT193619

PATIENT
  Age: 64 Year
  Sex: Female

DRUGS (1)
  1. OLANZAPINE. [Suspect]
     Active Substance: OLANZAPINE
     Indication: SCHIZOPHRENIA
     Dosage: 7 UG/LITRE TOTAL
     Route: 048
     Dates: start: 20171204, end: 20171204

REACTIONS (2)
  - Sopor [Unknown]
  - Drug abuse [Unknown]

NARRATIVE: CASE EVENT DATE: 20171204
